FAERS Safety Report 9320481 (Version 2)
Quarter: 2013Q3

REPORT INFORMATION
  Report Type: Spontaneous
  Country: JP (occurrence: JP)
  Receive Date: 20130530
  Receipt Date: 20130711
  Transmission Date: 20140515
  Serious: Yes (Other)
  Sender: FDA-Public Use
  Company Number: JP-009507513-1305JPN016083

PATIENT
  Age: 77 Year
  Sex: Female

DRUGS (3)
  1. GLACTIV [Suspect]
     Indication: TYPE 2 DIABETES MELLITUS
     Dosage: 25 MG, ONCE A DAY
     Route: 048
     Dates: start: 20130425, end: 201305
  2. GLACTIV [Suspect]
     Dosage: 50 MG ONCE A DAY
     Route: 048
     Dates: start: 201305, end: 201305
  3. AMARYL [Concomitant]

REACTIONS (1)
  - Liver disorder [Not Recovered/Not Resolved]
